FAERS Safety Report 6924687-4 (Version None)
Quarter: 2010Q3

REPORT INFORMATION
  Report Type: 
  Country: None (occurrence: None)
  Receive Date: 20100816
  Receipt Date: 20100805
  Transmission Date: 20110219
  Serious: No
  Sender: FDA-Public Use
  Company Number: US-BIOGENIDEC-2010BI027259

PATIENT
  Sex: Male

DRUGS (1)
  1. TYSABRI [Suspect]
     Indication: MULTIPLE SCLEROSIS
     Route: 042
     Dates: start: 20080930

REACTIONS (6)
  - ABDOMINAL PAIN UPPER [None]
  - BURNING SENSATION [None]
  - DECREASED IMMUNE RESPONSIVENESS [None]
  - DYSKINESIA [None]
  - FATIGUE [None]
  - PROSTATE INFECTION [None]
